FAERS Safety Report 19069803 (Version 7)
Quarter: 2025Q1

REPORT INFORMATION
  Report Type: Spontaneous
  Country: US (occurrence: US)
  Receive Date: 20210329
  Receipt Date: 20250304
  Transmission Date: 20250409
  Serious: Yes (Other)
  Sender: PFIZER
  Company Number: US-PFIZER INC-2020456278

PATIENT
  Age: 67 Year
  Sex: Female

DRUGS (10)
  1. XELJANZ [Suspect]
     Active Substance: TOFACITINIB CITRATE
     Indication: Rheumatoid arthritis
     Dates: start: 20200215
  2. XELJANZ [Suspect]
     Active Substance: TOFACITINIB CITRATE
     Dates: start: 20200830
  3. XELJANZ [Suspect]
     Active Substance: TOFACITINIB CITRATE
     Dates: start: 20200901
  4. XELJANZ [Suspect]
     Active Substance: TOFACITINIB CITRATE
     Dates: start: 20200911
  5. XELJANZ [Suspect]
     Active Substance: TOFACITINIB CITRATE
     Dates: start: 20200920, end: 20201023
  6. XELJANZ [Suspect]
     Active Substance: TOFACITINIB CITRATE
     Dates: start: 20201207
  7. XELJANZ [Suspect]
     Active Substance: TOFACITINIB CITRATE
     Dates: start: 20210102
  8. XELJANZ [Suspect]
     Active Substance: TOFACITINIB CITRATE
     Dosage: 5 MG, 2X/DAY
     Route: 048
  9. XELJANZ [Suspect]
     Active Substance: TOFACITINIB CITRATE
     Dosage: 5 MG, 1X/DAY
     Route: 048
  10. XELJANZ [Suspect]
     Active Substance: TOFACITINIB CITRATE

REACTIONS (14)
  - Knee arthroplasty [Unknown]
  - Therapeutic product effect delayed [Unknown]
  - Off label use [Unknown]
  - Product dose omission issue [Unknown]
  - Pyrexia [Unknown]
  - Cough [Recovered/Resolved]
  - Upper respiratory tract congestion [Unknown]
  - Nasal congestion [Unknown]
  - Vomiting [Unknown]
  - Suspected COVID-19 [Unknown]
  - Sinusitis [Unknown]
  - Ligament sprain [Unknown]
  - Illness [Unknown]
  - Therapeutic response unexpected [Unknown]
